FAERS Safety Report 11390668 (Version 1)
Quarter: 2015Q3

REPORT INFORMATION
  Report Type: Spontaneous
  Country: GB (occurrence: None)
  Receive Date: 20150813
  Receipt Date: 20150813
  Transmission Date: 20151125
  Serious: Yes (Hospitalization, Disabling, Other)
  Sender: FDA-Public Use
  Company Number: 2015RR-101237

PATIENT
  Sex: Female
  Weight: 69.8 kg

DRUGS (3)
  1. ISOTRETINOIN (ISOTRETINOIN) UNKNOWN [Suspect]
     Active Substance: ISOTRETINOIN
     Indication: ACNE
     Route: 048
     Dates: start: 20150207, end: 20150703
  2. VENTOLIN [Concomitant]
     Active Substance: ALBUTEROL SULFATE
  3. CLENIL MODULITE (BECLOMETASONE DIPROPIONATE) [Concomitant]

REACTIONS (4)
  - Sciatica [None]
  - Myalgia [None]
  - Neuropathy peripheral [None]
  - Arthralgia [None]

NARRATIVE: CASE EVENT DATE: 20150505
